FAERS Safety Report 4853639-3 (Version None)
Quarter: 2005Q4

REPORT INFORMATION
  Report Type: 
  Country: None (occurrence: None)
  Receive Date: 20051214
  Receipt Date: 20051209
  Transmission Date: 20060501
  Serious: Yes (Other)
  Sender: FDA-Public Use
  Company Number: 2005SE07120

PATIENT
  Age: 31588 Day
  Sex: Female

DRUGS (3)
  1. BLOPRESS TABLETS 8 [Suspect]
     Indication: HYPERTENSION
     Route: 048
     Dates: start: 20050820, end: 20050829
  2. BLOPRESS TABLETS 8 [Suspect]
     Route: 048
     Dates: start: 20050830, end: 20051105
  3. THYRADIN S [Concomitant]
     Indication: HYPOTHYROIDISM
     Route: 048
     Dates: start: 19850101

REACTIONS (1)
  - RHABDOMYOLYSIS [None]
